FAERS Safety Report 7572213-1 (Version None)
Quarter: 2011Q2

REPORT INFORMATION
  Report Type: 
  Country: None (occurrence: None)
  Receive Date: 20110624
  Receipt Date: 20110613
  Transmission Date: 20111010
  Serious: Yes (Other)
  Sender: FDA-Public Use
  Company Number: PHHY2009JP09958

PATIENT
  Sex: Male
  Weight: 56 kg

DRUGS (20)
  1. CERTICAN [Suspect]
     Indication: HEART TRANSPLANT
     Dosage: 1.5 MG, DAILY
     Route: 048
     Dates: start: 20080724, end: 20080807
  2. CERTICAN [Suspect]
     Dosage: 1.25 MG, DAILY
     Route: 048
     Dates: start: 20080926
  3. NEORAL [Suspect]
     Indication: HEART TRANSPLANT
     Dosage: 180 MG, DAILY
     Route: 048
     Dates: start: 20040207, end: 20080727
  4. NEORAL [Suspect]
     Dosage: 150 MG, DAILY
     Route: 048
     Dates: start: 20080809, end: 20080822
  5. CERTICAN [Suspect]
     Dosage: 0.5 MG, DAILY
     Route: 048
     Dates: start: 20080903, end: 20080925
  6. CELLCEPT [Suspect]
     Indication: HEART TRANSPLANT
     Dosage: 1.25 G, DAILY
     Route: 048
     Dates: start: 20040209
  7. NEORAL [Suspect]
     Dosage: 170 MG, DAILY
     Route: 048
     Dates: start: 20080903, end: 20080911
  8. CELLCEPT [Suspect]
     Dosage: 1.25 G, DAILY
     Route: 048
     Dates: end: 20080723
  9. NORVASC [Concomitant]
     Indication: HYPERTENSION
     Dosage: 7.5 MG, UNK
     Route: 048
  10. NEORAL [Suspect]
     Dosage: 160 MG, DAILY
     Route: 048
     Dates: start: 20080823, end: 20080902
  11. SULFAMETHOXAZOLE [Concomitant]
     Indication: ANTIFUNGAL PROPHYLAXIS
     Dosage: 1 DF
     Route: 048
  12. PREDNISOLONE [Suspect]
     Dosage: 30 DF
     Route: 048
     Dates: start: 20080826
  13. CERTICAN [Suspect]
     Dosage: 1.75 MG, DAILY
     Route: 048
     Dates: start: 20080808, end: 20080829
  14. NEORAL [Suspect]
     Dosage: 160 MG, DAILY
     Route: 048
     Dates: start: 20080728, end: 20080728
  15. NEORAL [Suspect]
     Dosage: 160 MG, DAILY
     Dates: start: 20080912
  16. CARBAMAZEPINE [Suspect]
  17. NEORAL [Suspect]
     Dosage: 140 MG, DAILY
     Route: 048
     Dates: start: 20080729, end: 20080808
  18. PREDNISOLONE [Suspect]
     Indication: HEART TRANSPLANT
     Dosage: UNK
     Route: 048
     Dates: start: 20040201
  19. PREDNISOLONE [Suspect]
     Dosage: UNK
     Route: 048
     Dates: end: 20070101
  20. VALGANCICLOVIR [Concomitant]
     Indication: INFECTION PROPHYLAXIS
     Dosage: 900 MG
     Route: 048
     Dates: start: 20080530, end: 20080901

REACTIONS (16)
  - CORONARY ARTERY DISEASE [None]
  - PANEL-REACTIVE ANTIBODY INCREASED [None]
  - EPSTEIN-BARR VIRUS INFECTION [None]
  - IMMUNOSUPPRESSANT DRUG LEVEL DECREASED [None]
  - DYSPNOEA EXERTIONAL [None]
  - SNAKE BITE [None]
  - ENDOTHELIN ABNORMAL [None]
  - LYMPHOMA [None]
  - WHITE BLOOD CELL COUNT DECREASED [None]
  - CYTOMEGALOVIRUS INFECTION [None]
  - TRANSPLANT REJECTION [None]
  - MALAISE [None]
  - WOUND [None]
  - BRAIN NATRIURETIC PEPTIDE DECREASED [None]
  - INTERLEUKIN-2 RECEPTOR INCREASED [None]
  - LEUKOPENIA [None]
